FAERS Safety Report 22263964 (Version 2)
Quarter: 2023Q4

REPORT INFORMATION
  Report Type: Spontaneous
  Country: CN (occurrence: CN)
  Receive Date: 20230428
  Receipt Date: 20231006
  Transmission Date: 20240110
  Serious: Yes (Life-Threatening, Hospitalization, Other)
  Sender: FDA-Public Use
  Company Number: CN-BAYER-2023A058393

PATIENT
  Age: 32 Year
  Sex: Female
  Weight: 54 kg

DRUGS (2)
  1. ULTRAVIST [Suspect]
     Active Substance: IOPROMIDE
     Indication: Computerised tomogram abdomen
     Dosage: 70 ML, ONCE
     Route: 041
     Dates: start: 20230412, end: 20230412
  2. ULTRAVIST [Suspect]
     Active Substance: IOPROMIDE
     Indication: Pancreatitis acute

REACTIONS (12)
  - Anaphylactic shock [Recovering/Resolving]
  - Altered state of consciousness [Recovered/Resolved]
  - Dyspnoea [None]
  - Hypotension [Recovered/Resolved]
  - Urinary incontinence [Recovered/Resolved]
  - Rash [Recovered/Resolved]
  - Dermatitis allergic [Recovered/Resolved]
  - Tachycardia [Recovered/Resolved]
  - Oxygen saturation decreased [Recovered/Resolved]
  - Chest discomfort [None]
  - Respiratory rate increased [None]
  - Incorrect drug administration rate [None]

NARRATIVE: CASE EVENT DATE: 20230412
